FAERS Safety Report 25779306 (Version 2)
Quarter: 2025Q3

REPORT INFORMATION
  Report Type: Report from Study
  Country: US (occurrence: US)
  Receive Date: 20250909
  Receipt Date: 20250918
  Transmission Date: 20251020
  Serious: No
  Sender: ABBVIE
  Company Number: US-ABBVIE-6450278

PATIENT
  Sex: Female
  Weight: 74.842 kg

DRUGS (2)
  1. RINVOQ [Suspect]
     Active Substance: UPADACITINIB
     Indication: Eczema
     Dosage: FORM STRENGTH: 15 MILLIGRAM?TABLET
     Route: 048
     Dates: start: 20240812
  2. RINVOQ [Suspect]
     Active Substance: UPADACITINIB
     Indication: Eczema
     Route: 048

REACTIONS (4)
  - Eczema [Not Recovered/Not Resolved]
  - Pain of skin [Not Recovered/Not Resolved]
  - Gastrointestinal disorder [Unknown]
  - Sleep disorder [Not Recovered/Not Resolved]

NARRATIVE: CASE EVENT DATE: 20250101
